FAERS Safety Report 7359954-6 (Version None)
Quarter: 2011Q1

REPORT INFORMATION
  Report Type: 
  Country: None (occurrence: None)
  Receive Date: 20110317
  Receipt Date: 20110314
  Transmission Date: 20110831
  Serious: Yes (Other)
  Sender: FDA-Public Use
  Company Number: DE-ELI_LILLY_AND_COMPANY-DE201103004284

PATIENT
  Sex: Female

DRUGS (3)
  1. YENTREVE [Suspect]
     Dosage: 40 MG, 2/D
  2. YENTREVE [Suspect]
     Dosage: 20 MG, 2/D
  3. YENTREVE [Suspect]
     Indication: STRESS URINARY INCONTINENCE
     Dosage: 20 MG, 2/D

REACTIONS (23)
  - NAUSEA [None]
  - GAIT DISTURBANCE [None]
  - LETHARGY [None]
  - HYPERHIDROSIS [None]
  - DISORIENTATION [None]
  - FLATULENCE [None]
  - AGITATION [None]
  - AGGRESSION [None]
  - MUSCLE SPASMS [None]
  - THERMAL BURN [None]
  - HYPOTHYROIDISM [None]
  - CARDIAC FAILURE [None]
  - GLAUCOMA [None]
  - DIZZINESS [None]
  - HEADACHE [None]
  - URINE ODOUR ABNORMAL [None]
  - PARAESTHESIA [None]
  - PAIN IN EXTREMITY [None]
  - INSOMNIA [None]
  - VISUAL IMPAIRMENT [None]
  - MEMORY IMPAIRMENT [None]
  - ERUCTATION [None]
  - FATIGUE [None]
